FAERS Safety Report 18291750 (Version 1)
Quarter: 2020Q3

REPORT INFORMATION
  Report Type: Spontaneous
  Country: US (occurrence: US)
  Receive Date: 20200921
  Receipt Date: 20200921
  Transmission Date: 20201103
  Serious: Yes (Other)
  Sender: FDA-Public Use
  Company Number: US-BAYER-2020-193462

PATIENT
  Age: 67 Year
  Sex: Male

DRUGS (2)
  1. XOFIGO [Suspect]
     Active Substance: RADIUM RA-223 DICHLORIDE
  2. OFEV [Suspect]
     Active Substance: NINTEDANIB
     Indication: IDIOPATHIC PULMONARY FIBROSIS
     Dosage: 150 MG, BID
     Route: 048
     Dates: start: 20191201

REACTIONS (9)
  - Diarrhoea [Recovered/Resolved]
  - Diarrhoea [Not Recovered/Not Resolved]
  - Gastrooesophageal reflux disease [None]
  - Bone graft removal [Recovering/Resolving]
  - Nausea [None]
  - Osteomyelitis [Not Recovered/Not Resolved]
  - Edentulous [None]
  - Osteonecrosis of jaw [None]
  - Weight decreased [None]

NARRATIVE: CASE EVENT DATE: 201912
